FAERS Safety Report 12728916 (Version 1)
Quarter: 2016Q3

REPORT INFORMATION
  Report Type: Spontaneous
  Country: US (occurrence: US)
  Receive Date: 20160909
  Receipt Date: 20160909
  Transmission Date: 20161109
  Serious: Yes (Other)
  Sender: FDA-Public Use
  Company Number: US-BAYER-2016-173054

PATIENT
  Age: 78 Year
  Sex: Male

DRUGS (2)
  1. DABIGATRAN [Interacting]
     Active Substance: DABIGATRAN
  2. ACETYLSALICYLIC ACID({=100 MG) [Suspect]
     Active Substance: ASPIRIN
     Dosage: UNK

REACTIONS (4)
  - Subdural haematoma [Recovered/Resolved]
  - Fall [None]
  - Labelled drug-drug interaction medication error [None]
  - Drug administration error [None]
